FAERS Safety Report 15182330 (Version 2)
Quarter: 2018Q4

REPORT INFORMATION
  Report Type: Spontaneous
  Country: US (occurrence: US)
  Receive Date: 20180723
  Receipt Date: 20181004
  Transmission Date: 20190204
  Serious: No
  Sender: FDA-Public Use
  Company Number: US-GLAXOSMITHKLINE-US2018126935

PATIENT
  Sex: Female

DRUGS (1)
  1. ADVAIR DISKUS [Suspect]
     Active Substance: FLUTICASONE PROPIONATE\SALMETEROL XINAFOATE
     Indication: PNEUMONIA
     Dosage: 1 PUFF(S), BID
     Route: 055
     Dates: start: 20180711, end: 20180714

REACTIONS (5)
  - Product use in unapproved indication [Unknown]
  - Candida infection [Recovering/Resolving]
  - Drug ineffective [Unknown]
  - Off label use [Unknown]
  - Wrong technique in device usage process [Unknown]
